FAERS Safety Report 9290909 (Version 2)
Quarter: 2013Q2

REPORT INFORMATION
  Report Type: Spontaneous
  Country: GB (occurrence: GB)
  Receive Date: 20130515
  Receipt Date: 20130610
  Transmission Date: 20140414
  Serious: Yes (Other)
  Sender: FDA-Public Use
  Company Number: GB-JNJFOC-20130502250

PATIENT
  Age: 0 Year
  Sex: Female
  Weight: 2.81 kg

DRUGS (12)
  1. NICOTINE [Suspect]
     Route: 064
  2. NICOTINE [Suspect]
     Indication: PRODUCT USED FOR UNKNOWN INDICATION
     Route: 064
  3. SUBUTEX [Suspect]
     Indication: DRUG DEPENDENCE
     Route: 064
  4. SUBUTEX [Suspect]
     Indication: DRUG DEPENDENCE
     Route: 064
  5. SUBUTEX [Suspect]
     Indication: DRUG DEPENDENCE
     Route: 064
  6. SUBUTEX [Suspect]
     Indication: DRUG DEPENDENCE
     Route: 064
     Dates: start: 20011220
  7. SUBUTEX [Suspect]
     Indication: DRUG DEPENDENCE
     Route: 064
     Dates: end: 20020706
  8. METHADONE [Suspect]
     Indication: PRODUCT USED FOR UNKNOWN INDICATION
     Route: 064
     Dates: start: 2001
  9. ALBUTEROL [Suspect]
     Indication: ASTHMA
     Route: 064
  10. BECOTIDE [Suspect]
     Indication: PRODUCT USED FOR UNKNOWN INDICATION
     Route: 064
  11. ZOPICLONE [Suspect]
     Indication: INSOMNIA
     Route: 064
  12. VALIUM [Suspect]
     Indication: TREMOR
     Route: 064

REACTIONS (2)
  - Drug withdrawal syndrome neonatal [Recovered/Resolved]
  - Foetal exposure during pregnancy [Recovered/Resolved]
